FAERS Safety Report 5628146-0 (Version None)
Quarter: 2008Q1

REPORT INFORMATION
  Report Type: 
  Country: None (occurrence: None)
  Receive Date: 20080215
  Receipt Date: 20080206
  Transmission Date: 20080703
  Serious: Yes (Other)
  Sender: FDA-Public Use
  Company Number: IT-ELI_LILLY_AND_COMPANY-IT200802001088

PATIENT
  Sex: Male

DRUGS (2)
  1. GEMZAR [Suspect]
     Indication: LUNG ADENOCARCINOMA
     Dosage: 1450 MG, PER CYCLE
     Route: 042
     Dates: start: 20071214, end: 20080110
  2. CISPLATIN [Concomitant]
     Indication: LUNG ADENOCARCINOMA
     Dosage: 60 MG, PER CYCLE
     Route: 042
     Dates: start: 20071214, end: 20080110

REACTIONS (1)
  - THROMBOCYTHAEMIA [None]
